FAERS Safety Report 10945039 (Version 1)
Quarter: 2015Q1

REPORT INFORMATION
  Report Type: Spontaneous
  Country: CA (occurrence: CA)
  Receive Date: 20150323
  Receipt Date: 20150323
  Transmission Date: 20150721
  Serious: Yes (Other)
  Sender: FDA-Public Use
  Company Number: CA-ROCHE-1552999

PATIENT
  Age: 56 Year
  Sex: Female

DRUGS (9)
  1. SALAZOPYRIN [Suspect]
     Active Substance: SULFASALAZINE
     Indication: PRODUCT USED FOR UNKNOWN INDICATION
     Route: 065
     Dates: start: 1992
  2. METHOTREXATE [Suspect]
     Active Substance: METHOTREXATE
     Route: 065
     Dates: start: 201207
  3. PREDNISONE. [Concomitant]
     Active Substance: PREDNISONE
  4. VITAMIN C [Concomitant]
     Active Substance: ASCORBIC ACID
  5. ACTEMRA [Suspect]
     Active Substance: TOCILIZUMAB
     Indication: PRODUCT USED FOR UNKNOWN INDICATION
     Route: 042
  6. SALAZOPYRIN [Suspect]
     Active Substance: SULFASALAZINE
     Route: 065
     Dates: start: 201207
  7. METHOTREXATE [Suspect]
     Active Substance: METHOTREXATE
     Indication: PRODUCT USED FOR UNKNOWN INDICATION
     Route: 065
     Dates: start: 1997
  8. FOLIC ACID. [Concomitant]
     Active Substance: FOLIC ACID
  9. ENBREL [Suspect]
     Active Substance: ETANERCEPT
     Indication: RHEUMATOID ARTHRITIS
     Route: 058
     Dates: start: 200503

REACTIONS (5)
  - Arthropathy [Unknown]
  - Malignant melanoma [Recovered/Resolved]
  - Seborrhoeic keratosis [Unknown]
  - Drug ineffective [Unknown]
  - Musculoskeletal disorder [Unknown]

NARRATIVE: CASE EVENT DATE: 201206
